FAERS Safety Report 17367184 (Version 11)
Quarter: 2023Q2

REPORT INFORMATION
  Report Type: Spontaneous
  Country: US (occurrence: US)
  Receive Date: 20200204
  Receipt Date: 20230406
  Transmission Date: 20230721
  Serious: Yes (Hospitalization, Other)
  Sender: FDA-Public Use
  Company Number: US-PFIZER INC-2020044415

PATIENT
  Age: 75 Year
  Sex: Male

DRUGS (7)
  1. XELJANZ XR [Suspect]
     Active Substance: TOFACITINIB CITRATE
     Indication: Rheumatoid arthritis
     Dosage: 11 MG, 1X/DAY
     Route: 048
     Dates: start: 201807, end: 20200128
  2. XELJANZ XR [Suspect]
     Active Substance: TOFACITINIB CITRATE
     Dosage: 11 MG, 1X/DAY
     Route: 048
     Dates: start: 202001
  3. XELJANZ XR [Suspect]
     Active Substance: TOFACITINIB CITRATE
     Dosage: 11 MG, 1X/DAY
     Route: 048
     Dates: start: 2020, end: 202110
  4. XELJANZ XR [Suspect]
     Active Substance: TOFACITINIB CITRATE
     Dosage: 11 MG, 1X/DAY
     Route: 048
     Dates: start: 202201
  5. LIPITOR [Concomitant]
     Active Substance: ATORVASTATIN CALCIUM
     Dosage: UNK
  6. ATENOLOL [Concomitant]
     Active Substance: ATENOLOL
     Dosage: UNK
  7. ASPIRIN [Concomitant]
     Active Substance: ASPIRIN
     Dosage: UNK

REACTIONS (17)
  - Osteoarthritis [Unknown]
  - Malignant melanoma of sites other than skin [Unknown]
  - Joint effusion [Unknown]
  - Iron deficiency anaemia [Recovered/Resolved]
  - Immune system disorder [Unknown]
  - Intentional dose omission [Unknown]
  - Infection [Recovered/Resolved]
  - Herpes zoster [Unknown]
  - Gait inability [Unknown]
  - Asthenia [Unknown]
  - Pain in extremity [Unknown]
  - Hypoaesthesia [Recovered/Resolved]
  - Tendonitis [Unknown]
  - Muscle strain [Unknown]
  - Neuralgia [Unknown]
  - Back pain [Unknown]
  - COVID-19 [Unknown]

NARRATIVE: CASE EVENT DATE: 20200101
